FAERS Safety Report 4737165-8 (Version None)
Quarter: 2005Q3

REPORT INFORMATION
  Report Type: 
  Country: None (occurrence: None)
  Receive Date: 20050728
  Receipt Date: 20050504
  Transmission Date: 20060218
  Serious: Yes (Hospitalization)
  Sender: FDA-Public Use
  Company Number: 200513857US

PATIENT

DRUGS (1)
  1. KETEK [Suspect]

REACTIONS (2)
  - DYSPHASIA [None]
  - MYASTHENIA GRAVIS [None]
